FAERS Safety Report 11679423 (Version 2)
Quarter: 2015Q4

REPORT INFORMATION
  Report Type: Spontaneous
  Country: US (occurrence: US)
  Receive Date: 20151027
  Receipt Date: 20151104
  Transmission Date: 20160304
  Serious: No
  Sender: FDA-Public Use
  Company Number: US-ELI_LILLY_AND_COMPANY-US201008003764

PATIENT
  Age: 73 Year
  Sex: Female

DRUGS (4)
  1. FORTEO [Suspect]
     Active Substance: TERIPARATIDE
     Indication: OSTEOPOROSIS
     Dosage: 20 UG, DAILY (1/D)
     Dates: start: 20090916
  2. FORTEO [Suspect]
     Active Substance: TERIPARATIDE
     Dosage: 20 UG, DAILY (1/D)
  3. NEXIUM [Concomitant]
     Active Substance: ESOMEPRAZOLE MAGNESIUM
  4. FORTEO [Suspect]
     Active Substance: TERIPARATIDE
     Dosage: 20 UG, DAILY (1/D)
     Route: 065

REACTIONS (16)
  - Plantar fasciitis [Recovering/Resolving]
  - Pain in extremity [Unknown]
  - Blood pressure increased [Unknown]
  - Haematochezia [Unknown]
  - Muscle spasms [Unknown]
  - Gastrooesophageal reflux disease [Unknown]
  - Throat irritation [Unknown]
  - Glycosylated haemoglobin increased [Unknown]
  - Dysphagia [Unknown]
  - Ligament sprain [Unknown]
  - Pharyngeal erythema [Unknown]
  - Exostosis [Unknown]
  - Pharyngeal disorder [Unknown]
  - Abdominal pain [Unknown]
  - Gastrointestinal disorder [Unknown]
  - Chest pain [Unknown]

NARRATIVE: CASE EVENT DATE: 2009
